FAERS Safety Report 8823169 (Version 5)
Quarter: 2013Q2

REPORT INFORMATION
  Report Type: Report from Study
  Country: US (occurrence: US)
  Receive Date: 20121003
  Receipt Date: 20130604
  Transmission Date: 20140414
  Serious: Yes (Life-Threatening, Hospitalization, Other)
  Sender: FDA-Public Use
  Company Number: US-PFIZER INC-2012239228

PATIENT
  Age: 14 Year
  Sex: Female
  Weight: 57.4 kg

DRUGS (23)
  1. REVATIO [Suspect]
     Indication: PULMONARY ARTERIAL HYPERTENSION
     Dosage: 20 MG, 3X/DAY
     Route: 048
     Dates: start: 200506
  2. TYVASO [Suspect]
     Indication: PULMONARY ARTERIAL HYPERTENSION
     Dosage: 216 MCG (54 MCG, 4 IN1 D)
     Route: 045
     Dates: start: 201004
  3. TRACLEER [Suspect]
     Indication: PULMONARY ARTERIAL HYPERTENSION
     Dosage: 62.5 MG, 2X/DAY
     Route: 048
     Dates: start: 200703
  4. PHENYLEPHRINE [Concomitant]
     Indication: EPISTAXIS
     Dosage: UNK
     Dates: start: 2010
  5. DEXTROMETHORPHAN [Concomitant]
     Indication: PULMONARY CONGESTION
  6. ACETYLSALICYLIC ACID [Concomitant]
     Indication: PULMONARY ARTERIAL HYPERTENSION
     Dosage: UNK
     Dates: start: 2004
  7. ACETYLSALICYLIC ACID [Concomitant]
     Indication: BLOOD PRESSURE
  8. ACETYLSALICYLIC ACID [Concomitant]
     Indication: CARDIAC DISORDER
  9. FERROUS SULFATE [Concomitant]
     Indication: ANAEMIA
     Dosage: UNK
     Dates: start: 2009
  10. TRIAMCINOLONE [Concomitant]
     Indication: RASH
     Dosage: UNK
     Dates: start: 2002
  11. FLUTICASONE [Concomitant]
     Indication: RHINITIS ALLERGIC
     Dosage: UNK
     Route: 045
     Dates: start: 2004
  12. FLUTICASONE [Concomitant]
     Indication: ASTHMA
  13. LEVOTHYROXINE [Concomitant]
     Indication: HYPOTHYROIDISM
     Dosage: UNK
     Dates: start: 20100707
  14. SPIRONOLACTONE [Concomitant]
     Indication: ATRIAL SEPTAL DEFECT
     Dosage: UNK
     Dates: start: 2004
  15. SPIRONOLACTONE [Concomitant]
     Indication: VENTRICULAR SEPTAL DEFECT
  16. SPIRONOLACTONE [Concomitant]
     Indication: BLOOD PRESSURE
  17. SPIRONOLACTONE [Concomitant]
     Indication: CARDIAC DISORDER
  18. FUROSEMIDE [Concomitant]
     Indication: ATRIAL SEPTAL DEFECT
     Dosage: UNK
     Dates: start: 2004
  19. FUROSEMIDE [Concomitant]
     Indication: VENTRICULAR SEPTAL DEFECT
  20. OXYGEN [Concomitant]
     Indication: HYPOXIA
     Dosage: UNK
     Route: 045
     Dates: start: 2005
  21. LETAIRIS [Concomitant]
     Indication: PULMONARY HYPERTENSION
     Dosage: 10 MG, 1X/DAY
  22. LASIX [Concomitant]
     Indication: BLOOD PRESSURE
     Dosage: UNK
  23. LASIX [Concomitant]
     Indication: CARDIAC DISORDER

REACTIONS (2)
  - Hypoxia [Recovered/Resolved]
  - Pneumonia [Recovered/Resolved]
